FAERS Safety Report 7313348-8 (Version None)
Quarter: 2011Q1

REPORT INFORMATION
  Report Type: 
  Country: None (occurrence: None)
  Receive Date: 20110225
  Receipt Date: 20110214
  Transmission Date: 20110831
  Serious: Yes (Other)
  Sender: FDA-Public Use
  Company Number: FR-ELI_LILLY_AND_COMPANY-FR201012006511

PATIENT
  Age: 73 Year
  Sex: Female
  Weight: 54 kg

DRUGS (5)
  1. MICARDIS [Concomitant]
     Dosage: 40 MG, DAILY (1/D)
     Route: 048
  2. ACETAMINOPHEN [Concomitant]
     Dosage: 1000 MG, DAILY (1/D)
     Route: 048
  3. NEXIUM [Concomitant]
     Dosage: 40 MG, DAILY (1/D)
     Route: 048
  4. DENSICAL D [Concomitant]
     Dosage: 1000 MG, DAILY (1/D)
     Route: 048
  5. FORTEO [Suspect]
     Indication: OSTEOPOROSIS
     Dosage: 20 UG, DAILY (1/D)
     Route: 058
     Dates: start: 20100720

REACTIONS (2)
  - VISUAL ACUITY REDUCED [None]
  - EYE HAEMORRHAGE [None]
